FAERS Safety Report 13985630 (Version 2)
Quarter: 2017Q4

REPORT INFORMATION
  Report Type: Report from Study
  Country: US (occurrence: US)
  Receive Date: 20170919
  Receipt Date: 20171208
  Transmission Date: 20180321
  Serious: No
  Sender: FDA-Public Use
  Company Number: US-ALEXION PHARMACEUTICALS INC.-A201710239

PATIENT
  Sex: Female

DRUGS (1)
  1. STRENSIQ [Suspect]
     Active Substance: ASFOTASE ALFA
     Indication: HYPOPHOSPHATASIA
     Dosage: UNK UNK, SIX TIMES/WEEK
     Route: 058

REACTIONS (15)
  - Gait disturbance [Unknown]
  - Osteopenia [Unknown]
  - Vitamin B6 increased [Unknown]
  - Blood creatinine decreased [Unknown]
  - Vitamin D decreased [Unknown]
  - Anxiety [Unknown]
  - Arthralgia [Unknown]
  - Urine calcium/creatinine ratio decreased [Unknown]
  - Depression [Unknown]
  - Bone density increased [Unknown]
  - Blood phosphorus increased [Unknown]
  - Musculoskeletal stiffness [Unknown]
  - Osteosclerosis [Unknown]
  - Blood alkaline phosphatase increased [Unknown]
  - Injection site reaction [Unknown]

NARRATIVE: CASE EVENT DATE: 20170214
